FAERS Safety Report 7709817-9 (Version None)
Quarter: 2011Q3

REPORT INFORMATION
  Report Type: 
  Country: None (occurrence: None)
  Receive Date: 20110825
  Receipt Date: 20110815
  Transmission Date: 20111222
  Serious: Yes (Hospitalization, Disabling)
  Sender: FDA-Public Use
  Company Number: US-MERCK-1103USA01102

PATIENT
  Age: 64 Year
  Sex: Female
  Weight: 55 kg

DRUGS (11)
  1. SIMVASTATIN [Concomitant]
     Route: 065
     Dates: start: 20080501
  2. FOSAMAX [Suspect]
     Route: 048
     Dates: start: 20090204, end: 20090301
  3. VITAMIN E [Concomitant]
     Route: 065
     Dates: start: 20000101
  4. LOVASTATIN [Concomitant]
     Indication: BLOOD CHOLESTEROL INCREASED
     Route: 065
     Dates: start: 20050401, end: 20080501
  5. ECHINACEA (UNSPECIFIED) [Concomitant]
     Route: 065
     Dates: start: 20000101
  6. ACTONEL [Suspect]
     Indication: OSTEOPOROSIS
     Route: 048
     Dates: start: 20000101, end: 20050101
  7. FOSAMAX PLUS D [Suspect]
     Indication: OSTEOPOROSIS
     Route: 048
     Dates: start: 20070308, end: 20090302
  8. ESTROVEN (NEW FORMULA) [Concomitant]
     Route: 065
     Dates: start: 20031101, end: 20061001
  9. ASCORBIC ACID [Concomitant]
     Route: 065
     Dates: start: 20000101
  10. OS-CAL + D [Concomitant]
     Route: 065
     Dates: start: 20060101, end: 20070101
  11. FOSAMAX [Suspect]
     Indication: OSTEOPOROSIS
     Route: 048
     Dates: start: 20051001, end: 20070301

REACTIONS (21)
  - ANAEMIA POSTOPERATIVE [None]
  - BACK PAIN [None]
  - FEMUR FRACTURE [None]
  - PAIN [None]
  - TENOSYNOVITIS [None]
  - JOINT INJURY [None]
  - GAIT DISTURBANCE [None]
  - RASH PAPULAR [None]
  - THYROID NEOPLASM [None]
  - ALLERGY TO VACCINE [None]
  - FALL [None]
  - OSTEOARTHRITIS [None]
  - ADVERSE DRUG REACTION [None]
  - SINUSITIS [None]
  - RASH ERYTHEMATOUS [None]
  - HYPOAESTHESIA [None]
  - GROIN PAIN [None]
  - CATARACT [None]
  - GASTROOESOPHAGEAL REFLUX DISEASE [None]
  - LOW TURNOVER OSTEOPATHY [None]
  - DRUG HYPERSENSITIVITY [None]
